FAERS Safety Report 20896515 (Version 6)
Quarter: 2022Q3

REPORT INFORMATION
  Report Type: Spontaneous
  Country: LT (occurrence: LT)
  Receive Date: 20220531
  Receipt Date: 20220912
  Transmission Date: 20221026
  Serious: Yes (Hospitalization, Other)
  Sender: FDA-Public Use
  Company Number: LT-MYLANLABS-2022M1039761

PATIENT
  Age: 61 Year
  Sex: Female

DRUGS (43)
  1. CLOZAPINE [Suspect]
     Active Substance: CLOZAPINE
     Indication: Behaviour disorder
     Dosage: 25 MILLIGRAM, QD (25 MG, PER DAY, WITH A GRADUAL DOSE TITRATION TO 150 MG/DAY)
     Route: 065
  2. CLOZAPINE [Suspect]
     Active Substance: CLOZAPINE
     Indication: Hallucination, visual
     Dosage: 150 MILLIGRAM, QD (150 MG, PER DAY )
     Route: 065
  3. CLOZAPINE [Suspect]
     Active Substance: CLOZAPINE
     Indication: Parkinson^s disease psychosis
     Dosage: 150 MILLIGRAM, QD (WITH A GRADUAL DOSE TITRATION TO 150 MG/DAY)
     Route: 065
  4. CLOZAPINE [Suspect]
     Active Substance: CLOZAPINE
     Indication: Psychotic disorder
  5. OLANZAPINE [Interacting]
     Active Substance: OLANZAPINE
     Indication: Product used for unknown indication
     Dosage: 2.5 MILLIGRAM, QD
     Route: 065
  6. OLANZAPINE [Interacting]
     Active Substance: OLANZAPINE
     Dosage: 15 MILLIGRAM, QD (15 MG, PER DAY  )
     Route: 065
  7. OLANZAPINE [Interacting]
     Active Substance: OLANZAPINE
     Dosage: 10 MILLIGRAM, QD (10 MG, PER DAY )
     Route: 065
  8. BENSERAZIDE\LEVODOPA [Suspect]
     Active Substance: BENSERAZIDE\LEVODOPA
     Indication: Parkinson^s disease
     Dosage: UNK (LEVODOPA AND BENSERAZIDE (100 MG AND 25 MG FIVE TIMES A DAY)) (0.2 DAY)
     Route: 065
  9. QUETIAPINE [Suspect]
     Active Substance: QUETIAPINE
     Indication: Depression
     Dosage: 25 MILLIGRAM, HS (25 MG AT NIGHT)
     Route: 065
  10. QUETIAPINE [Suspect]
     Active Substance: QUETIAPINE
     Dosage: 450 MILLIGRAM, QD (450 MG, PER DAY)
     Route: 065
  11. QUETIAPINE [Suspect]
     Active Substance: QUETIAPINE
     Dosage: UNK, QD (UPTO 25 MG A DAY)
     Route: 065
  12. QUETIAPINE [Suspect]
     Active Substance: QUETIAPINE
     Dosage: 450 MILLIGRAM, QD
     Route: 065
  13. BROMAZEPAM [Suspect]
     Active Substance: BROMAZEPAM
     Indication: Anxiety
     Dosage: 6 MILLIGRAM, QD, UP TO 6 MG/DAY
     Route: 065
  14. BROMAZEPAM [Suspect]
     Active Substance: BROMAZEPAM
     Indication: Sleep disorder
  15. BROMAZEPAM [Suspect]
     Active Substance: BROMAZEPAM
     Indication: Agitation
  16. BROMAZEPAM [Suspect]
     Active Substance: BROMAZEPAM
     Indication: Psychotic disorder
  17. BENSERAZIDE [Suspect]
     Active Substance: BENSERAZIDE
     Indication: Product used for unknown indication
     Dosage: 100 MILLIGRAM, QD (25 MG, 4X PER DAY )
     Route: 065
  18. BENSERAZIDE [Suspect]
     Active Substance: BENSERAZIDE
     Indication: Parkinson^s disease
     Dosage: 25 MILLIGRAM, 5XD
     Route: 065
  19. BENSERAZIDE [Suspect]
     Active Substance: BENSERAZIDE
     Dosage: 125 MILLIGRAM, QD (UNK, LEVODOPA AND BENSERAZIDE (100 MG AND 25 MG FIVE TIMES A DAY)
     Route: 065
  20. BENSERAZIDE [Suspect]
     Active Substance: BENSERAZIDE
     Dosage: INCREASED DOSE
     Route: 065
  21. BENSERAZIDE [Suspect]
     Active Substance: BENSERAZIDE
     Dosage: 125 MILLIGRAM, QD, ~25 MILLIGRAM, 5XD
     Route: 048
  22. LEVODOPA [Suspect]
     Active Substance: LEVODOPA
     Indication: Parkinson^s disease
     Dosage: 100 MILLIGRAM
     Route: 065
  23. LEVODOPA [Suspect]
     Active Substance: LEVODOPA
     Dosage: INCREASED DOSE
     Route: 065
  24. LEVODOPA [Suspect]
     Active Substance: LEVODOPA
     Dosage: 100 MILLIGRAM, QD
     Route: 065
  25. LEVODOPA [Suspect]
     Active Substance: LEVODOPA
     Dosage: 100 MILLIGRAM (LEVODOPA AND BENSERAZIDE (100 MG AND 25 MG FIVE TIMES A DAY) (0.2 DAY)
     Route: 065
  26. ROPINIROLE [Suspect]
     Active Substance: ROPINIROLE
     Indication: Parkinson^s disease
     Dosage: 8 MILLIGRAM, QD (8 MG, PER DAY)
     Route: 065
  27. ROPINIROLE [Suspect]
     Active Substance: ROPINIROLE
     Dosage: 12 MILLIGRAM, QD (12 MG, PER DAY)
     Route: 065
  28. ROPINIROLE [Suspect]
     Active Substance: ROPINIROLE
     Dosage: 20 MILLIGRAM, QD (20 MG, PER DAY )
     Route: 065
  29. ROPINIROLE [Suspect]
     Active Substance: ROPINIROLE
     Dosage: 8 MILLIGRAM, QD (8 MG, PER DAY)
     Route: 065
  30. ROPINIROLE [Suspect]
     Active Substance: ROPINIROLE
     Dosage: 20 MILLIGRAM, QD GRADUALLY INCREASING THE DOSE OF ROPINIROLE ON HER OWN (UP TO 20 MG/DAY)
     Route: 065
  31. SERTRALINE [Suspect]
     Active Substance: SERTRALINE HYDROCHLORIDE
     Indication: Depression
     Dosage: 125 MILLIGRAM, AM (125 MG IN MORNING)
     Route: 065
  32. SERTRALINE [Suspect]
     Active Substance: SERTRALINE HYDROCHLORIDE
     Indication: Anxiety
     Dosage: 150 MILLIGRAM, QD (150 MG, PER DAY)
     Route: 065
  33. TRIHEXYPHENIDYL [Suspect]
     Active Substance: TRIHEXYPHENIDYL
     Indication: Product used for unknown indication
     Dosage: 4 MILLIGRAM, QD (UPTO 4 MG/DAY)
     Route: 065
  34. MIRTAZAPINE [Suspect]
     Active Substance: MIRTAZAPINE
     Indication: Anxiety
     Dosage: 30 MILLIGRAM, QD (30 MG, PER DAY )
     Route: 065
  35. MIRTAZAPINE [Suspect]
     Active Substance: MIRTAZAPINE
     Indication: Agitation
     Dosage: 15 MILLIGRAM, QD (15 MG, PER DAY  )
     Route: 065
  36. MIRTAZAPINE [Suspect]
     Active Substance: MIRTAZAPINE
     Indication: Sleep disorder
     Dosage: 30 MILLIGRAM, QD (30 MG, PER DAY)
     Route: 065
  37. MIRTAZAPINE [Suspect]
     Active Substance: MIRTAZAPINE
     Indication: Psychotic disorder
  38. DIAZEPAM [Suspect]
     Active Substance: DIAZEPAM
     Indication: Anxiety
     Dosage: 10 MILLIGRAM, QD (UPTO 10MG/DAY)
     Route: 065
  39. DIAZEPAM [Suspect]
     Active Substance: DIAZEPAM
     Indication: Tension
  40. QUETIAPINE [Concomitant]
     Active Substance: QUETIAPINE
     Indication: Product used for unknown indication
     Dosage: 450 MILLIGRAM, QD
     Route: 065
  41. DIAZEPAM [Concomitant]
     Active Substance: DIAZEPAM
     Indication: Anxiety
     Dosage: UP TO 10 MG/DAY
     Route: 065
  42. DIAZEPAM [Concomitant]
     Active Substance: DIAZEPAM
     Indication: Tension
  43. TRIHEXYPHENIDYL [Concomitant]
     Active Substance: TRIHEXYPHENIDYL
     Indication: Product used for unknown indication
     Dosage: UPTO 4 MG/DAY
     Route: 065

REACTIONS (9)
  - Condition aggravated [Recovering/Resolving]
  - Neutropenia [Unknown]
  - Intentional product misuse [Unknown]
  - Drug ineffective [Recovering/Resolving]
  - Muscle spasms [Unknown]
  - Movement disorder [Unknown]
  - Speech disorder [Unknown]
  - Labelled drug-disease interaction issue [Unknown]
  - On and off phenomenon [Not Recovered/Not Resolved]
